FAERS Safety Report 9943270 (Version 4)
Quarter: 2014Q2

REPORT INFORMATION
  Report Type: Report from Study
  Country: BR (occurrence: BR)
  Receive Date: 20140303
  Receipt Date: 20140503
  Transmission Date: 20141212
  Serious: Yes (Death, Disabling, Other)
  Sender: FDA-Public Use
  Company Number: PHHY2014BR025329

PATIENT
  Age: 78 Year
  Sex: Female
  Weight: 60 kg

DRUGS (10)
  1. EXELON PATCH [Suspect]
     Indication: DEMENTIA ALZHEIMER^S TYPE
     Dosage: 4.6 MG (5CM2) /24 HOURS
     Route: 062
  2. EXELON PATCH [Suspect]
     Dosage: 9.5 MG (10CM2) /24 HOURS
     Route: 062
  3. EXELON PATCH [Suspect]
     Dosage: 13.3 MG (15CM2) /24 HOURS
     Route: 062
  4. DIOVAN [Suspect]
     Indication: HYPERTENSION
     Dosage: 1 DF, A DAY
     Route: 048
  5. LOSARTAN [Concomitant]
     Dosage: 2 DF, A DAY
  6. LEXOTAN [Concomitant]
     Indication: DEPRESSION
     Dosage: 2 DF DAILY
     Route: 048
     Dates: end: 20140424
  7. DEPURA [Concomitant]
     Dosage: 15 DROPS DAILY
     Route: 048
     Dates: end: 20140424
  8. PROLOPA [Concomitant]
     Indication: PARKINSON^S DISEASE
     Dosage: 2 DF BID
     Route: 048
     Dates: end: 20140424
  9. CITALOPRAM [Concomitant]
     Indication: DEPRESSION
     Dosage: 1 DF DAILY
     Route: 048
     Dates: end: 20140424
  10. MEMANTINE [Concomitant]
     Indication: DEPRESSION
     Dosage: 2 DF DAILY
     Route: 048
     Dates: end: 20140424

REACTIONS (10)
  - Pulmonary embolism [Fatal]
  - Myocardial infarction [Fatal]
  - Abasia [Recovering/Resolving]
  - Eating disorder [Recovering/Resolving]
  - Eye disorder [Recovering/Resolving]
  - Aphasia [Not Recovered/Not Resolved]
  - Dysphagia [Recovering/Resolving]
  - Aggression [Recovered/Resolved]
  - Dementia Alzheimer^s type [Recovering/Resolving]
  - Drug ineffective [Not Recovered/Not Resolved]
